FAERS Safety Report 24357553 (Version 1)
Quarter: 2024Q3

REPORT INFORMATION
  Report Type: Spontaneous
  Country: PL (occurrence: PL)
  Receive Date: 20240924
  Receipt Date: 20240924
  Transmission Date: 20241017
  Serious: Yes (Other)
  Sender: BRACCO
  Company Number: None

PATIENT
  Age: 73 Year
  Sex: Male

DRUGS (1)
  1. PROHANCE [Suspect]
     Active Substance: GADOTERIDOL
     Indication: Magnetic resonance imaging pelvic
     Dosage: 13 ML, SINGLE
     Route: 042
     Dates: start: 20190121, end: 20190121

REACTIONS (7)
  - Bradyarrhythmia [Unknown]
  - Presyncope [Unknown]
  - Dizziness [Unknown]
  - Nausea [Unknown]
  - Dizziness [Unknown]
  - Blood glucose abnormal [Unknown]
  - Cold sweat [Unknown]

NARRATIVE: CASE EVENT DATE: 20190121
